FAERS Safety Report 16271870 (Version 1)
Quarter: 2019Q2

REPORT INFORMATION
  Report Type: Spontaneous
  Country: GB (occurrence: GB)
  Receive Date: 20190503
  Receipt Date: 20190503
  Transmission Date: 20190711
  Serious: Yes (Hospitalization)
  Sender: FDA-Public Use
  Company Number: GB-TEVA-2019-GB-1043941

PATIENT
  Age: 68 Year
  Sex: Female
  Weight: 35.5 kg

DRUGS (9)
  1. CLARITHROMYCIN. [Suspect]
     Active Substance: CLARITHROMYCIN
     Route: 065
  2. TAZOCIN [Concomitant]
     Active Substance: PIPERACILLIN SODIUM\TAZOBACTAM SODIUM
  3. SALBUTAMOL [Concomitant]
     Active Substance: ALBUTEROL
  4. IPRATROPIUM [Concomitant]
     Active Substance: IPRATROPIUM
  5. RISPERIDONE. [Suspect]
     Active Substance: RISPERIDONE
     Indication: SCHIZOPHRENIA
     Route: 048
     Dates: start: 20181101, end: 20190329
  6. ENOXAPARIN [Concomitant]
     Active Substance: ENOXAPARIN
  7. PREDNISOLONE. [Concomitant]
     Active Substance: PREDNISOLONE
  8. LANSOPRAZOLE. [Concomitant]
     Active Substance: LANSOPRAZOLE
  9. CO-AMOXICLAV [Concomitant]
     Active Substance: AMOXICILLIN\CLAVULANATE POTASSIUM

REACTIONS (8)
  - Lower respiratory tract infection [Unknown]
  - Drug interaction [Unknown]
  - Cough [Unknown]
  - Malaise [Unknown]
  - Electrocardiogram QT prolonged [Not Recovered/Not Resolved]
  - Pyrexia [Unknown]
  - Crepitations [Unknown]
  - Vomiting [Recovered/Resolved]

NARRATIVE: CASE EVENT DATE: 20190327
